FAERS Safety Report 21498578 (Version 1)
Quarter: 2022Q4

REPORT INFORMATION
  Report Type: Spontaneous
  Country: US (occurrence: None)
  Receive Date: 20221021
  Receipt Date: 20221021
  Transmission Date: 20230113
  Serious: No
  Sender: FDA-Public Use
  Company Number: None

PATIENT
  Age: 40 Year
  Sex: Female

DRUGS (1)
  1. AJOVY [Suspect]
     Active Substance: FREMANEZUMAB-VFRM
     Indication: Migraine without aura
     Dosage: 225MG/1.5ML ONCE MONTHLY SQ?
     Route: 058
     Dates: start: 20220720

REACTIONS (11)
  - Injection site reaction [None]
  - Injection site swelling [None]
  - Injection site pruritus [None]
  - Injection site irritation [None]
  - Injection site discolouration [None]
  - Allergy to metals [None]
  - Arthralgia [None]
  - Joint stiffness [None]
  - Joint swelling [None]
  - Joint warmth [None]
  - Rheumatoid arthritis [None]

NARRATIVE: CASE EVENT DATE: 20220803
